FAERS Safety Report 17165804 (Version 3)
Quarter: 2021Q1

REPORT INFORMATION
  Report Type: Report from Study
  Country: US (occurrence: US)
  Receive Date: 20191217
  Receipt Date: 20210209
  Transmission Date: 20210419
  Serious: Yes (Life-Threatening, Hospitalization)
  Sender: FDA-Public Use
  Company Number: NVSC2019US018539

PATIENT
  Age: 3 Year
  Sex: Male

DRUGS (23)
  1. ERWINIA [Suspect]
     Active Substance: ASPARAGINASE ERWINIA CHRYSANTHEMI
     Dosage: 19000 IU THREE TIMES PER WEEK X2 WEEKS
     Route: 030
     Dates: start: 20190827
  2. LORAZEPAM. [Concomitant]
     Active Substance: LORAZEPAM
     Indication: PRODUCT USED FOR UNKNOWN INDICATION
     Dosage: 0.25 MILLIGRAM, 1 TIME
     Route: 042
     Dates: start: 20191209, end: 20191209
  3. INC424A [Suspect]
     Active Substance: RUXOLITINIB
     Dosage: 35 MG, BID
     Route: 048
     Dates: start: 20191220
  4. DEXAMETHASONE SODIUM PHOSPHATE. [Suspect]
     Active Substance: DEXAMETHASONE SODIUM PHOSPHATE
     Indication: ACUTE LYMPHOCYTIC LEUKAEMIA
     Dosage: NO TREATMENT
     Route: 065
  5. METHOTREXATE SODIUM. [Suspect]
     Active Substance: METHOTREXATE SODIUM
     Dosage: 12 MG ONE TIME (DAYS 1, 29, AND 36)
     Route: 037
     Dates: start: 20190821, end: 20191107
  6. CYTARABINE. [Suspect]
     Active Substance: CYTARABINE
     Dosage: NO TREATMENT
     Route: 065
  7. METHOTREXATE SODIUM. [Suspect]
     Active Substance: METHOTREXATE SODIUM
     Indication: ACUTE LYMPHOCYTIC LEUKAEMIA
     Dosage: NO TREATMENT
     Route: 065
  8. CYCLOPHOSPHAMIDE. [Suspect]
     Active Substance: CYCLOPHOSPHAMIDE
     Dosage: 760 MG
     Route: 042
     Dates: start: 20190924
  9. CYPROHEPTADINE. [Concomitant]
     Active Substance: CYPROHEPTADINE
     Indication: PRODUCT USED FOR UNKNOWN INDICATION
     Dosage: 2 MG, TID
     Route: 048
     Dates: start: 20191209
  10. INC424A [Suspect]
     Active Substance: RUXOLITINIB
     Dosage: 35 MG, BID (DAYS 1 TO 14 AND 29 TO 42)
     Route: 048
     Dates: start: 20190821, end: 20191205
  11. CYTARABINE. [Suspect]
     Active Substance: CYTARABINE
     Indication: ACUTE LYMPHOCYTIC LEUKAEMIA
     Dosage: 57 MG (DAYS 29 TO 32 AND 36 TO 39)
     Route: 042
     Dates: start: 20190924
  12. THIOGUANINE [Suspect]
     Active Substance: THIOGUANINE
     Dosage: 45 MG (DAYS 29 TO 42)
     Route: 048
     Dates: start: 20190924
  13. METHOTREXATE SODIUM. [Suspect]
     Active Substance: METHOTREXATE SODIUM
     Dosage: 100 MG/M2 (ESCALATE BY 50MG/M2/DOSE D1, 11, 21, 31 AND 41)
     Route: 042
     Dates: start: 20191107, end: 20191127
  14. METHOTREXATE SODIUM. [Suspect]
     Active Substance: METHOTREXATE SODIUM
     Dosage: 100 MG/M2 (ESCALATE BY 50MG/M2/DOSE D1, 11, 21, 31 AND 41)
     Route: 042
     Dates: start: 20191211
  15. VINCRISTINE [Suspect]
     Active Substance: VINCRISTINE
     Indication: ACUTE LYMPHOCYTIC LEUKAEMIA
     Dosage: NO TREATMENT
     Route: 065
  16. CYCLOPHOSPHAMIDE. [Suspect]
     Active Substance: CYCLOPHOSPHAMIDE
     Indication: ACUTE LYMPHOCYTIC LEUKAEMIA
     Dosage: NO TREATMENT
     Route: 065
  17. INC424A [Suspect]
     Active Substance: RUXOLITINIB
     Indication: ACUTE LYMPHOCYTIC LEUKAEMIA
     Dosage: NO TREATMENT
     Route: 065
  18. VINCRISTINE [Suspect]
     Active Substance: VINCRISTINE
     Dosage: 1.14 MG ONE TIME (DAYS 43 AND 50)
     Route: 042
     Dates: start: 20191211
  19. THIOGUANINE [Suspect]
     Active Substance: THIOGUANINE
     Indication: ACUTE LYMPHOCYTIC LEUKAEMIA
     Dosage: NO TREATMENT
     Route: 065
  20. ERWINIA [Suspect]
     Active Substance: ASPARAGINASE ERWINIA CHRYSANTHEMI
     Indication: ACUTE LYMPHOCYTIC LEUKAEMIA
     Dosage: NO TREATMENT
     Route: 065
  21. DEXAMETHASONE SODIUM PHOSPHATE. [Suspect]
     Active Substance: DEXAMETHASONE SODIUM PHOSPHATE
     Dosage: 4 MG, BID (DAYS 1 TO 7 AND 15 TO 21)
     Route: 048
     Dates: start: 20190821
  22. VINCRISTINE [Suspect]
     Active Substance: VINCRISTINE
     Dosage: 1.14 MG ONE TIME (DAYS 43 AND 50)
     Route: 042
     Dates: start: 20190821, end: 20191206
  23. BACTRIM [Concomitant]
     Active Substance: SULFAMETHOXAZOLE\TRIMETHOPRIM
     Indication: PRODUCT USED FOR UNKNOWN INDICATION
     Dosage: 80 MILLIGRAM MON/WED/FRI
     Route: 048
     Dates: start: 20191209

REACTIONS (11)
  - Lethargy [Recovered/Resolved]
  - Mucosal inflammation [Recovered/Resolved]
  - Decreased appetite [Recovering/Resolving]
  - Vomiting [Recovered/Resolved]
  - Dehydration [Recovered/Resolved]
  - Constipation [Recovered/Resolved]
  - Hypoglycaemia [Recovered/Resolved]
  - Abdominal pain [Recovered/Resolved]
  - Dehydration [Recovered/Resolved]
  - Constipation [Recovered/Resolved]
  - Constipation [Unknown]

NARRATIVE: CASE EVENT DATE: 20190720
